FAERS Safety Report 5160622-X (Version None)
Quarter: 2006Q4

REPORT INFORMATION
  Report Type: 
  Country: None (occurrence: None)
  Receive Date: 20061121
  Receipt Date: 20061026
  Transmission Date: 20070319
  Serious: Yes (Hospitalization, Other)
  Sender: FDA-Public Use
  Company Number: 2006012091

PATIENT
  Age: 69 Year
  Sex: Male
  Weight: 87.0906 kg

DRUGS (1)
  1. BEXTRA [Suspect]
     Dosage: 20 MG

REACTIONS (4)
  - ACUTE MYOCARDIAL INFARCTION [None]
  - CEREBRAL ATROPHY [None]
  - CORONARY ARTERY DISEASE [None]
  - THROMBOTIC STROKE [None]
